FAERS Safety Report 21667088 (Version 2)
Quarter: 2022Q4

REPORT INFORMATION
  Report Type: Report from Study
  Country: US (occurrence: US)
  Receive Date: 20221201
  Receipt Date: 20221213
  Transmission Date: 20230113
  Serious: No
  Sender: FDA-Public Use
  Company Number: US-ABBVIE-4218792

PATIENT
  Sex: Male

DRUGS (12)
  1. VENCLEXTA [Suspect]
     Active Substance: VENETOCLAX
     Indication: Acute myeloid leukaemia
     Dosage: TAKE 4 TABLETS ONCE DAILY?FORM STRENGTH: 100 MILLIGRAM
     Route: 048
     Dates: end: 20221123
  2. METOPROLOL SUCCINATE [Concomitant]
     Active Substance: METOPROLOL SUCCINATE
     Indication: Product used for unknown indication
     Dosage: FORM STRENGTH: 25 MILLIGRAM
     Route: 048
  3. ASPIRIN [Concomitant]
     Active Substance: ASPIRIN
     Indication: Product used for unknown indication
     Dosage: FORM STRENGTH: 81 MILLIGRAM
     Route: 048
  4. COLCHICINE [Concomitant]
     Active Substance: COLCHICINE
     Indication: Product used for unknown indication
     Dosage: FORM STRENGTH: 0.6 MILLIGRAM
     Route: 048
  5. COENZYME Q10 [Concomitant]
     Active Substance: DIETARY SUPPLEMENT\UBIDECARENONE
     Indication: Product used for unknown indication
     Dosage: FORM STRENGTH: 200 MILLIGRAM
     Route: 048
  6. ROSUVASTATIN CALCIUM [Concomitant]
     Active Substance: ROSUVASTATIN CALCIUM
     Indication: Product used for unknown indication
     Dosage: FORM STRENGTH: 20 MILLIGRAM
     Route: 048
  7. VENLAFAXINE HCL [Concomitant]
     Active Substance: VENLAFAXINE HYDROCHLORIDE
     Indication: Product used for unknown indication
     Dosage: FORM STRENGTH: 75 MILLIGRAM
     Route: 048
  8. RAMIPRIL [Concomitant]
     Active Substance: RAMIPRIL
     Indication: Product used for unknown indication
     Dosage: FORM STRENGTH: 10 MILLIGRAM
     Route: 048
  9. FUROSEMIDE [Concomitant]
     Active Substance: FUROSEMIDE
     Indication: Product used for unknown indication
     Dosage: FORM STRENGTH: 20 MILLIGRAM
     Route: 048
  10. NovoLog Injection [Concomitant]
     Indication: Product used for unknown indication
     Dosage: SOLUTION-100UNIT/ML?INJECTION
  11. CLOPIDOGREL BISULFATE [Concomitant]
     Active Substance: CLOPIDOGREL BISULFATE
     Indication: Product used for unknown indication
     Dosage: FORM STRENGTH: 75 MILLIGRAM
     Route: 048
  12. NEXIUM [Concomitant]
     Active Substance: ESOMEPRAZOLE MAGNESIUM
     Indication: Product used for unknown indication
     Dosage: FORM STRENGTH: 20 MILLIGRAM
     Route: 048

REACTIONS (1)
  - Off label use [Unknown]
